FAERS Safety Report 24860189 (Version 2)
Quarter: 2025Q1

REPORT INFORMATION
  Report Type: Spontaneous
  Country: US (occurrence: US)
  Receive Date: 20250120
  Receipt Date: 20250311
  Transmission Date: 20250408
  Serious: No
  Sender: ROCHE
  Company Number: US-ROCHE-10000181691

PATIENT
  Sex: Female

DRUGS (25)
  1. XOLAIR PFS [Suspect]
     Active Substance: OMALIZUMAB
     Indication: Sleep apnoea syndrome
     Dosage: STRENGTH: 300 MG/2ML
     Route: 058
  2. XOLAIR PFS [Suspect]
     Active Substance: OMALIZUMAB
  3. ALBUTEROL SU NEB [Concomitant]
  4. AMLODIPINE B [Concomitant]
  5. ASPIRIN CHE [Concomitant]
  6. ATORVASTATIN [Concomitant]
     Active Substance: ATORVASTATIN
  7. BUDESONIDE [Concomitant]
     Active Substance: BUDESONIDE
  8. FENOFIBRATE [Concomitant]
     Active Substance: FENOFIBRATE
  9. FLONASE [Concomitant]
     Active Substance: FLUTICASONE PROPIONATE
  10. FUROSEMIDE [Concomitant]
     Active Substance: FUROSEMIDE
  11. GLIMEPIRIDE [Concomitant]
     Active Substance: GLIMEPIRIDE
  12. HUMALOG [Concomitant]
     Active Substance: INSULIN LISPRO
  13. IPRATROPIUM [Concomitant]
     Active Substance: IPRATROPIUM
  14. IRON [Concomitant]
     Active Substance: IRON
  15. LOSARTAN POTASSIUM [Concomitant]
     Active Substance: LOSARTAN POTASSIUM
  16. METOPROLOL [Concomitant]
     Active Substance: METOPROLOL
  17. MONTELUKAST [Concomitant]
     Active Substance: MONTELUKAST
  18. NORTRIPTYLINE [Concomitant]
     Active Substance: NORTRIPTYLINE
  19. ONDANSETRON [Concomitant]
     Active Substance: ONDANSETRON
  20. PANTOPRAZOLE SODIUM [Concomitant]
     Active Substance: PANTOPRAZOLE SODIUM
  21. POTASSIUM [Concomitant]
     Active Substance: POTASSIUM
  22. TRELEGY ELLI AEP [Concomitant]
  23. VENTOLIN HFA AER 108 [Concomitant]
  24. VITAMIN C [Concomitant]
     Active Substance: ASCORBIC ACID
  25. VITAMIN D [Concomitant]
     Active Substance: VITAMIN D NOS

REACTIONS (2)
  - Bronchitis [Unknown]
  - Off label use [Unknown]
